FAERS Safety Report 4692511-9 (Version None)
Quarter: 2005Q2

REPORT INFORMATION
  Report Type: 
  Country: None (occurrence: None)
  Receive Date: 20050613
  Receipt Date: 20050318
  Transmission Date: 20051028
  Serious: No
  Sender: FDA-Public Use
  Company Number: 2005-00547

PATIENT
  Age: 45 Year
  Sex: Female

DRUGS (3)
  1. VELCADE [Suspect]
     Dosage: 2.10 MG, IV BOLUS
     Route: 040
     Dates: start: 20050204, end: 20050307
  2. DOXIL [Concomitant]
  3. KYTRIL [Concomitant]

REACTIONS (1)
  - SKIN DISCOLOURATION [None]
